FAERS Safety Report 5493334-3 (Version None)
Quarter: 2007Q4

REPORT INFORMATION
  Report Type: 
  Country: None (occurrence: None)
  Receive Date: 20071023
  Receipt Date: 20070821
  Transmission Date: 20080405
  Serious: No
  Sender: FDA-Public Use
  Company Number: US-BRISTOL-MYERS SQUIBB COMPANY-13885645

PATIENT
  Sex: Female

DRUGS (1)
  1. KENALOG-40 [Suspect]

REACTIONS (3)
  - HYPERHIDROSIS [None]
  - INJECTION SITE REACTION [None]
  - PALPITATIONS [None]
